FAERS Safety Report 7775312 (Version 2)
Quarter: 2012Q4

REPORT INFORMATION
  Report Type: 
  Country: US (occurrence: US)
  Receive Date: 20110126
  Receipt Date: 20120920
  Transmission Date: 20130627
  Serious: Yes (Hospitalization)
  Sender: FDA-Public Use
  Company Number: US-ELI_LILLY_AND_COMPANY-US201101003560

PATIENT
  Sex: Female
  Weight: 48.98 kg

DRUGS (9)
  1. FORTEO [Suspect]
     Indication: OSTEOPOROSIS
     Dosage: 20 ug, daily (1/D)
     Route: 058
     Dates: start: 20100525
  2. FORTEO [Suspect]
     Dosage: 20 ug, qd
  3. FLOVENT [Concomitant]
     Dosage: UNK
  4. NASONEX [Concomitant]
     Dosage: UNK
  5. DILTIAZEM [Concomitant]
     Dosage: UNK
  6. ATENOLOL [Concomitant]
     Dosage: UNK
  7. CRESTOR [Concomitant]
     Dosage: UNK
  8. BENADRYL [Concomitant]
     Dosage: UNK
  9. MULTIVITAMIN [Concomitant]
     Dosage: UNK

REACTIONS (3)
  - Heart rate increased [Unknown]
  - Back pain [Unknown]
  - Balance disorder [Recovered/Resolved]
